FAERS Safety Report 8518160-X (Version None)
Quarter: 2012Q3

REPORT INFORMATION
  Report Type: 
  Country: None (occurrence: None)
  Receive Date: 20120718
  Receipt Date: 20111012
  Transmission Date: 20120928
  Serious: No
  Sender: FDA-Public Use
  Company Number: US-BRISTOL-MYERS SQUIBB COMPANY-16155665

PATIENT
  Age: 68 Year
  Sex: Male
  Weight: 102 kg

DRUGS (4)
  1. COUMADIN [Suspect]
     Indication: ATRIAL FIBRILLATION
     Dosage: EACH NIGHT,INTD ON 07OCT11,08OCT,09OCT,RESD ON 10OCT11,12OCT,14OCT,16OCT,2.5MG;11OCT,13OCT,15OCT
     Dates: start: 20110920
  2. NORVASC [Concomitant]
  3. CRESTOR [Concomitant]
  4. ATENOLOL [Concomitant]

REACTIONS (1)
  - INTERNATIONAL NORMALISED RATIO INCREASED [None]
